FAERS Safety Report 7878430-5 (Version None)
Quarter: 2011Q4

REPORT INFORMATION
  Report Type: 
  Country: None (occurrence: None)
  Receive Date: 20111012
  Receipt Date: 20110411
  Transmission Date: 20120403
  Serious: Yes (Other)
  Sender: FDA-Public Use
  Company Number: 2011SP016264

PATIENT
  Age: 77 Year
  Sex: Female

DRUGS (1)
  1. PROVENTIL-HFA [Suspect]
     Indication: ASTHMA
     Dosage: PRN;INH
     Route: 055
     Dates: start: 20040101

REACTIONS (3)
  - DRUG EFFECT DECREASED [None]
  - FEELING JITTERY [None]
  - HEART RATE INCREASED [None]
